FAERS Safety Report 22086270 (Version 1)
Quarter: 2023Q1

REPORT INFORMATION
  Report Type: Spontaneous
  Country: US (occurrence: US)
  Receive Date: 20230310
  Receipt Date: 20230310
  Transmission Date: 20230417
  Serious: No
  Sender: FDA-Public Use
  Company Number: US-KARYOPHARM-2022KPT001662

PATIENT

DRUGS (12)
  1. XPOVIO [Suspect]
     Active Substance: SELINEXOR
     Indication: Plasma cell myeloma
     Dosage: 60 MG, WEEKLY
     Route: 048
     Dates: start: 20221223
  2. KYPROLIS [Concomitant]
     Active Substance: CARFILZOMIB
  3. LIPITOR [Concomitant]
     Active Substance: ATORVASTATIN CALCIUM
  4. ONDANSETRON [Concomitant]
     Active Substance: ONDANSETRON
  5. PLAVIX [Concomitant]
     Active Substance: CLOPIDOGREL BISULFATE
  6. XANAX [Concomitant]
     Active Substance: ALPRAZOLAM
  7. ZOMETA [Concomitant]
     Active Substance: ZOLEDRONIC ACID
  8. ZOVIRAX ACTIVE [Concomitant]
  9. DEXAMETHASONE [Concomitant]
     Active Substance: DEXAMETHASONE
  10. LUPRON [Concomitant]
     Active Substance: LEUPROLIDE ACETATE
  11. AMLODIPINE [Concomitant]
     Active Substance: AMLODIPINE BESYLATE
  12. ALTACE [Concomitant]
     Active Substance: RAMIPRIL

REACTIONS (4)
  - Somnolence [Recovered/Resolved]
  - Hot flush [Unknown]
  - Night sweats [Unknown]
  - Constipation [Unknown]

NARRATIVE: CASE EVENT DATE: 20221201
